FAERS Safety Report 19327115 (Version 1)
Quarter: 2021Q2

REPORT INFORMATION
  Report Type: Spontaneous
  Country: IT (occurrence: IT)
  Receive Date: 20210528
  Receipt Date: 20210528
  Transmission Date: 20210717
  Serious: Yes (Other)
  Sender: FDA-Public Use
  Company Number: IT-BAYER-2021-144681

PATIENT
  Age: 76 Year
  Sex: Male

DRUGS (1)
  1. STIVARGA [Suspect]
     Active Substance: REGORAFENIB
     Indication: COLORECTAL CANCER METASTATIC
     Dosage: 120 MG

REACTIONS (5)
  - Colorectal cancer metastatic [None]
  - Dissociation [None]
  - Fatigue [None]
  - Lethargy [None]
  - Somnolence [None]

NARRATIVE: CASE EVENT DATE: 20210520
